FAERS Safety Report 4588447-4 (Version None)
Quarter: 2005Q1

REPORT INFORMATION
  Report Type: 
  Country: None (occurrence: None)
  Receive Date: 20050215
  Receipt Date: 20050215
  Transmission Date: 20050727
  Serious: Yes (Hospitalization)
  Sender: FDA-Public Use
  Company Number: None

PATIENT
  Age: 63 Year
  Sex: Male

DRUGS (2)
  1. CISPLATIN [Suspect]
     Indication: LARYNGEAL CANCER
     Dosage: 75 MG /M2 IV Q 3 WK
     Route: 042
     Dates: start: 20050105
  2. TAXOTERE [Suspect]
     Dosage: 75 MG/M2 Q 3 WK IV
     Route: 042
     Dates: start: 20050105

REACTIONS (2)
  - FEBRILE NEUTROPENIA [None]
  - SEPSIS [None]
